FAERS Safety Report 8224017-4 (Version None)
Quarter: 2012Q1

REPORT INFORMATION
  Report Type: 
  Country: None (occurrence: None)
  Receive Date: 20120321
  Receipt Date: 20120312
  Transmission Date: 20120608
  Serious: Yes (Other)
  Sender: FDA-Public Use
  Company Number: GB-GENZYME-POMP-1002108

PATIENT
  Sex: Male

DRUGS (1)
  1. MYOZYME [Suspect]
     Indication: GLYCOGEN STORAGE DISEASE TYPE II
     Dosage: 500 MG, UNK
     Route: 042

REACTIONS (4)
  - TACHYCARDIA [None]
  - URTICARIA [None]
  - ERYTHEMA OF EYELID [None]
  - RESPIRATORY RATE INCREASED [None]
